FAERS Safety Report 5283868-9 (Version None)
Quarter: 2007Q2

REPORT INFORMATION
  Report Type: 
  Country: None (occurrence: None)
  Receive Date: 20070402
  Receipt Date: 20070319
  Transmission Date: 20071010
  Serious: Yes (Death, Hospitalization)
  Sender: FDA-Public Use
  Company Number: DE-GENENTECH-238776

PATIENT
  Age: 63 Year
  Sex: Female

DRUGS (3)
  1. BEVACIZUMAB [Suspect]
     Indication: COLORECTAL CANCER
     Dosage: 450 MG, UNK
     Dates: start: 20060713
  2. CAPECITABINE [Suspect]
     Indication: COLORECTAL CANCER
     Dosage: 2700 MG, UNK
     Route: 048
     Dates: start: 20060713
  3. IRINOTECAN HCL [Suspect]
     Indication: COLORECTAL CANCER
     Dosage: 340 MG, UNK
     Dates: start: 20060713

REACTIONS (3)
  - DIARRHOEA [None]
  - INFECTION [None]
  - SEPSIS [None]
